FAERS Safety Report 25611564 (Version 1)
Quarter: 2025Q3

REPORT INFORMATION
  Report Type: Spontaneous
  Country: US (occurrence: US)
  Receive Date: 20250728
  Receipt Date: 20250728
  Transmission Date: 20251021
  Serious: Yes (Hospitalization, Other)
  Sender: SPECGX
  Company Number: US-SPECGX-T202501251

PATIENT
  Age: 45 Year
  Sex: Female

DRUGS (1)
  1. PAMELOR [Suspect]
     Active Substance: NORTRIPTYLINE HYDROCHLORIDE
     Indication: Product used for unknown indication
     Route: 065

REACTIONS (9)
  - Respiratory rate increased [Unknown]
  - Somnolence [Unknown]
  - Intentional overdose [Unknown]
  - Agitation [Unknown]
  - Heart rate increased [Unknown]
  - Electrocardiogram QT prolonged [Unknown]
  - Endotracheal intubation [Unknown]
  - Hypotension [Unknown]
  - Brugada syndrome [Unknown]
